FAERS Safety Report 11508412 (Version 1)
Quarter: 2015Q3

REPORT INFORMATION
  Report Type: Spontaneous
  Country: IT (occurrence: IT)
  Receive Date: 20150915
  Receipt Date: 20150915
  Transmission Date: 20151125
  Serious: Yes (Other)
  Sender: FDA-Public Use
  Company Number: IT-TEVA-593135ACC

PATIENT
  Age: 44 Year
  Sex: Female
  Weight: 63 kg

DRUGS (1)
  1. CAPTOPRIL RATIOPHARM - COMPRESSE 50 MG - RATIOPHARM GMBH [Suspect]
     Active Substance: CAPTOPRIL
     Indication: PRODUCT USED FOR UNKNOWN INDICATION
     Dosage: 50 MG AS NECESSARY
     Route: 048
     Dates: start: 20150825

REACTIONS (2)
  - Limb discomfort [Recovered/Resolved]
  - Swollen tongue [Recovered/Resolved]

NARRATIVE: CASE EVENT DATE: 20150825
